FAERS Safety Report 7824196 (Version 4)
Quarter: 2012Q4

REPORT INFORMATION
  Report Type: 
  Country: AR (occurrence: AR)
  Receive Date: 20110224
  Receipt Date: 20121001
  Transmission Date: 20130627
  Serious: Yes (Other)
  Sender: FDA-Public Use
  Company Number: AR-AMGEN-ARGSP2011009418

PATIENT
  Age: 77 Year
  Sex: Female

DRUGS (2)
  1. ENBREL [Suspect]
     Indication: RHEUMATOID ARTHRITIS
     Dosage: 50 mg, weekly
     Route: 058
     Dates: start: 20060926, end: 20101111
  2. METHOTREXATE [Concomitant]
     Dosage: UNK
     Route: 048

REACTIONS (1)
  - Breast cancer [Not Recovered/Not Resolved]
